FAERS Safety Report 19202895 (Version 2)
Quarter: 2021Q2

REPORT INFORMATION
  Report Type: Report from Study
  Country: US (occurrence: US)
  Receive Date: 20210430
  Receipt Date: 20210511
  Transmission Date: 20210717
  Serious: No
  Sender: FDA-Public Use
  Company Number: NVSC2021US098284

PATIENT
  Sex: Female

DRUGS (1)
  1. ENTRESTO [Suspect]
     Active Substance: SACUBITRIL\VALSARTAN
     Indication: CARDIAC FAILURE
     Dosage: UNK UNK, QD (1/2 TABLET ONCE DAILY)
     Route: 048

REACTIONS (5)
  - Blood pressure decreased [Unknown]
  - Fatigue [Unknown]
  - Wrong technique in product usage process [Unknown]
  - Dyspnoea [Recovering/Resolving]
  - Pain [Unknown]
